FAERS Safety Report 8585303-1 (Version None)
Quarter: 2012Q3

REPORT INFORMATION
  Report Type: 
  Country: None (occurrence: None)
  Receive Date: 20120810
  Receipt Date: 20120803
  Transmission Date: 20120928
  Serious: Yes (Other)
  Sender: FDA-Public Use
  Company Number: CA-CELGENEUS-028-21880-12080833

PATIENT
  Sex: Female
  Weight: 68.7 kg

DRUGS (9)
  1. REVLIMID [Suspect]
     Dosage: 25 MILLIGRAM
     Route: 048
     Dates: start: 20110711
  2. SERTRALINE HYDROCHLORIDE [Concomitant]
     Dosage: 150 MILLIGRAM
     Route: 065
  3. REVLIMID [Suspect]
     Indication: MULTIPLE MYELOMA
     Dosage: 25 MILLIGRAM
     Route: 048
     Dates: start: 20101017, end: 20110615
  4. DEXAMETHASONE [Suspect]
     Dosage: 5.7143 MILLIGRAM
     Route: 065
     Dates: start: 20110711
  5. HYDROMORPHONE HYDROCHLORIDE [Concomitant]
     Dosage: 24 MILLIGRAM
     Route: 065
  6. LORAZEPAM [Concomitant]
     Dosage: 1 MILLIGRAM
     Route: 060
  7. DEXAMETHASONE [Suspect]
     Dosage: 5.7143 MILLIGRAM
     Route: 065
     Dates: start: 20101017, end: 20110615
  8. ATORVASTATIN [Concomitant]
     Dosage: 10 MILLIGRAM
     Route: 065
  9. TRAZODONE HYDROCHLORIDE [Concomitant]
     Dosage: 50 MILLIGRAM
     Route: 065

REACTIONS (1)
  - PERICARDITIS [None]
